FAERS Safety Report 7382324-1 (Version None)
Quarter: 2011Q1

REPORT INFORMATION
  Report Type: 
  Country: None (occurrence: None)
  Receive Date: 20110329
  Receipt Date: 20110202
  Transmission Date: 20110831
  Serious: No
  Sender: FDA-Public Use
  Company Number: US-BAYER-2011-014425

PATIENT
  Weight: 82 kg

DRUGS (4)
  1. SYNTHROID [Concomitant]
     Route: 048
  2. ALEVE [Suspect]
     Indication: PAIN
     Dosage: CONSUMER TOOK 2 ALEVE IN THE MORNING AND 1 AT NIGHT
     Route: 048
     Dates: start: 20100101
  3. ALEVE [Suspect]
     Dosage: 220 MG, PRN
     Route: 048
  4. DETROL [Concomitant]
     Route: 048

REACTIONS (1)
  - PAIN [None]
